FAERS Safety Report 6111842-9 (Version None)
Quarter: 2009Q1

REPORT INFORMATION
  Report Type: 
  Country: None (occurrence: None)
  Receive Date: 20090311
  Receipt Date: 20090217
  Transmission Date: 20090719
  Serious: Yes (Hospitalization, Disabling)
  Sender: FDA-Public Use
  Company Number: FR-PFIZER INC-2009172424

PATIENT

DRUGS (11)
  1. ALDACTONE [Suspect]
     Dosage: 50 MG, 2X/DAY
     Route: 048
  2. FUROSEMIDE [Interacting]
     Dosage: 10 MG, 2X/DAY
     Route: 048
  3. NICORANDIL [Interacting]
     Route: 048
  4. DISCOTRINE [Interacting]
     Dosage: 10 MG, 1X/DAY
     Route: 048
  5. DILTIAZEM HCL [Interacting]
     Route: 048
  6. DIAMICRON [Concomitant]
  7. KALEORID [Concomitant]
     Dosage: UNK
  8. SIMVASTATIN [Concomitant]
     Dosage: UNK
  9. PREDNISONE [Concomitant]
  10. ZOLPIDEM TARTRATE [Concomitant]
  11. OMEPRAZOLE [Concomitant]
     Dosage: UNK

REACTIONS (3)
  - DRUG INTERACTION [None]
  - FALL [None]
  - TIBIA FRACTURE [None]
